FAERS Safety Report 11820476 (Version 1)
Quarter: 2015Q4

REPORT INFORMATION
  Report Type: Spontaneous
  Country: US (occurrence: US)
  Receive Date: 20151210
  Receipt Date: 20151210
  Transmission Date: 20160305
  Serious: No
  Sender: FDA-Public Use
  Company Number: US-JNJFOC-20140709819

PATIENT
  Age: 76 Year
  Sex: Male
  Weight: 77 kg

DRUGS (4)
  1. ALLOPURINOL. [Concomitant]
     Active Substance: ALLOPURINOL
     Indication: PROPHYLAXIS
  2. VITAMIN B [Concomitant]
     Active Substance: VITAMIN B
  3. MULTIVITAMINS [Concomitant]
     Active Substance: VITAMINS
  4. IMBRUVICA [Suspect]
     Active Substance: IBRUTINIB
     Indication: CHRONIC LYMPHOCYTIC LEUKAEMIA
     Route: 048
     Dates: start: 20140522

REACTIONS (6)
  - Pyrexia [Recovered/Resolved]
  - Viral upper respiratory tract infection [Unknown]
  - Fatigue [Not Recovered/Not Resolved]
  - Rhinorrhoea [Recovered/Resolved]
  - Dysphonia [Unknown]
  - Cough [Recovered/Resolved]

NARRATIVE: CASE EVENT DATE: 2014
